FAERS Safety Report 9654654 (Version 1)
Quarter: 2013Q4

REPORT INFORMATION
  Report Type: Spontaneous
  Country: US (occurrence: US)
  Receive Date: 20131029
  Receipt Date: 20131029
  Transmission Date: 20140711
  Serious: No
  Sender: FDA-Public Use
  Company Number: US-BIOGENIDEC-2013BI085548

PATIENT
  Sex: Female

DRUGS (4)
  1. TECFIDERA [Suspect]
     Indication: MULTIPLE SCLEROSIS
     Route: 048
     Dates: start: 20130813
  2. CEPHALEXIN [Concomitant]
  3. MELATONIN [Concomitant]
  4. SYNTHROID [Concomitant]

REACTIONS (2)
  - Chest pain [Unknown]
  - Flushing [Unknown]
